FAERS Safety Report 14384363 (Version 1)
Quarter: 2018Q1

REPORT INFORMATION
  Report Type: Not Available
  Country: JP (occurrence: JP)
  Receive Date: 20180115
  Receipt Date: 20180115
  Transmission Date: 20180509
  Serious: Yes (Other)
  Sender: FDA-Public Use
  Company Number: JP-IDTAUSTRALIA-2018-JP-000002

PATIENT
  Age: 5 Year
  Sex: Male

DRUGS (1)
  1. DEXAMETHASONE (NON-SPECIFIC) [Suspect]
     Active Substance: DEXAMETHASONE
     Dosage: 10 MG/SQUARE-METER/DAY

REACTIONS (2)
  - Retinal disorder [Unknown]
  - Ocular hypertension [Unknown]
